FAERS Safety Report 17566760 (Version 2)
Quarter: 2020Q2

REPORT INFORMATION
  Report Type: Spontaneous
  Country: AU (occurrence: AU)
  Receive Date: 20200320
  Receipt Date: 20200408
  Transmission Date: 20200713
  Serious: Yes (Hospitalization, Other)
  Sender: FDA-Public Use
  Company Number: AU-MYLANLABS-2020M1030643

PATIENT
  Age: 35 Year
  Sex: Female

DRUGS (5)
  1. HYDRALAZINE [Suspect]
     Active Substance: HYDRALAZINE HYDROCHLORIDE
     Indication: HYPERTENSION
     Dosage: UNK
  2. NIFEDIPINE. [Suspect]
     Active Substance: NIFEDIPINE
     Indication: HYPERTENSION
     Dosage: UNK
     Route: 065
  3. CALCITONIN [Suspect]
     Active Substance: CALCITONIN
     Indication: BLOOD CALCIUM INCREASED
     Dosage: UNK
     Route: 048
  4. PREDNISONE. [Suspect]
     Active Substance: PREDNISONE
     Indication: BLOOD CALCIUM INCREASED
     Dosage: UNK
     Route: 048
  5. LABETALOL [Suspect]
     Active Substance: LABETALOL\LABETALOL HYDROCHLORIDE
     Indication: HYPERTENSION
     Dosage: UNK
     Route: 048

REACTIONS (2)
  - Maternal exposure during pregnancy [Recovered/Resolved]
  - Premature labour [Unknown]
